FAERS Safety Report 11133627 (Version 1)
Quarter: 2015Q2

REPORT INFORMATION
  Report Type: Spontaneous
  Country: JP (occurrence: JP)
  Receive Date: 20150523
  Receipt Date: 20150523
  Transmission Date: 20150821
  Serious: Yes (Other)
  Sender: FDA-Public Use
  Company Number: JP-CIPLA LTD.-2015JP03922

PATIENT

DRUGS (9)
  1. VINCRISTINE [Suspect]
     Active Substance: VINCRISTINE
     Indication: RETINOBLASTOMA
     Route: 065
  2. CYCLOPHOSPHAMIDE. [Suspect]
     Active Substance: CYCLOPHOSPHAMIDE
     Indication: RETINOBLASTOMA
     Dosage: 120 MG/KG, UNK
     Route: 065
  3. TETRAHYDROPYRANYL ADRIAMYCIN [Suspect]
     Active Substance: PIRARUBICIN
     Indication: RETINOBLASTOMA
     Route: 065
  4. ETOPOSIDE INJECTION 6 MG/ ML [Suspect]
     Active Substance: ETOPOSIDE
     Indication: RETINOBLASTOMA
     Route: 065
  5. THIOTEPA. [Suspect]
     Active Substance: THIOTEPA
     Indication: RETINOBLASTOMA
     Dosage: 500 MG/M2, UNK
     Route: 065
  6. CISPLATIN. [Suspect]
     Active Substance: CISPLATIN
     Indication: RETINOBLASTOMA
     Route: 065
  7. METHOTREXATE [Suspect]
     Active Substance: METHOTREXATE
     Indication: RETINOBLASTOMA
     Route: 065
  8. MELPHALAN [Suspect]
     Active Substance: MELPHALAN
     Indication: RETINOBLASTOMA
     Dosage: 160 MG/M2, UNK
     Route: 065
  9. CARBOPLATIN. [Suspect]
     Active Substance: CARBOPLATIN
     Indication: RETINOBLASTOMA
     Route: 065

REACTIONS (3)
  - Metastases to bone marrow [Unknown]
  - Metastasis [Unknown]
  - Febrile neutropenia [Unknown]
